FAERS Safety Report 25014285 (Version 1)
Quarter: 2025Q1

REPORT INFORMATION
  Report Type: Spontaneous
  Country: GR (occurrence: GR)
  Receive Date: 20250226
  Receipt Date: 20250226
  Transmission Date: 20250409
  Serious: Yes (Other)
  Sender: SANOFI AVENTIS
  Company Number: GR-SANOFI-02420392

PATIENT
  Age: 56 Year
  Sex: Female

DRUGS (1)
  1. TOUJEO [Suspect]
     Active Substance: INSULIN GLARGINE
     Indication: Type 1 diabetes mellitus
     Dates: start: 20250213

REACTIONS (10)
  - Subarachnoid haemorrhage [Unknown]
  - Paralysis [Unknown]
  - Animal bite [Unknown]
  - Head injury [Unknown]
  - Burning sensation [Unknown]
  - Back pain [Recovered/Resolved]
  - Arthralgia [Unknown]
  - Tremor [Unknown]
  - Pain [Unknown]
  - Myalgia [Unknown]

NARRATIVE: CASE EVENT DATE: 20250201
